FAERS Safety Report 6736700-8 (Version None)
Quarter: 2010Q2

REPORT INFORMATION
  Report Type: 
  Country: None (occurrence: None)
  Receive Date: 20100521
  Receipt Date: 20100512
  Transmission Date: 20101027
  Serious: Yes (Hospitalization)
  Sender: FDA-Public Use
  Company Number: PHHY2010MT31111

PATIENT
  Sex: Female

DRUGS (2)
  1. EXELON [Suspect]
     Indication: DEMENTIA ALZHEIMER'S TYPE
     Dosage: 4.5 MG, BID
     Route: 048
  2. EXELON [Suspect]
     Dosage: 1.5 MG, BID
     Route: 048

REACTIONS (3)
  - GENERAL PHYSICAL HEALTH DETERIORATION [None]
  - NAUSEA [None]
  - VOMITING [None]
